FAERS Safety Report 20179267 (Version 7)
Quarter: 2022Q3

REPORT INFORMATION
  Report Type: Report from Study
  Country: DE (occurrence: DE)
  Receive Date: 20211214
  Receipt Date: 20220920
  Transmission Date: 20221027
  Serious: Yes (Hospitalization, Other)
  Sender: FDA-Public Use
  Company Number: DE-009507513-2110DEU006256

PATIENT
  Age: 41 Year
  Sex: Male
  Weight: 62 kg

DRUGS (12)
  1. PREGABALIN [Suspect]
     Active Substance: PREGABALIN
     Indication: Depression
     Dosage: 350 MILLIGRAM, ONCE DAILY (QD)
     Route: 048
     Dates: start: 20201222
  2. PREGABALIN [Suspect]
     Active Substance: PREGABALIN
     Indication: Epilepsy
  3. PANTOPRAZOLE [Suspect]
     Active Substance: PANTOPRAZOLE
     Indication: Chronic gastritis
     Dosage: 80 MILLIGRAM, QD(2 X 40MG DAILY, BID)(START:22-OCT-2021)
     Route: 048
     Dates: start: 20211022
  4. PANTOPRAZOLE [Suspect]
     Active Substance: PANTOPRAZOLE
     Dosage: 160 MILLIGRAM, QD (80 MG, 2X/DAY)(START:22-OCT-2021)
     Route: 048
     Dates: start: 20211022
  5. PANTOPRAZOLE [Suspect]
     Active Substance: PANTOPRAZOLE
     Dosage: 40 MG DAILY, START DATE: 22-OCT-2021
     Route: 048
     Dates: start: 20211022
  6. ZEPATIER [Suspect]
     Active Substance: ELBASVIR\GRAZOPREVIR
     Indication: Chronic hepatitis C
     Dosage: 50 MILLIGRAM, QD, 100MG/50MG, QD
     Route: 048
     Dates: start: 20210930
  7. ZEPATIER [Suspect]
     Active Substance: ELBASVIR\GRAZOPREVIR
     Dosage: UNK UNK, QD,100MG/50MG, QD
     Route: 048
     Dates: start: 20210930
  8. ZEPATIER [Suspect]
     Active Substance: ELBASVIR\GRAZOPREVIR
     Dosage: 50 MILLIGRAM, QD, 100MG/50MG, QD
     Route: 048
     Dates: start: 20210930
  9. LEVOMETHADONE [Suspect]
     Active Substance: LEVOMETHADONE
     Indication: Drug withdrawal maintenance therapy
     Dosage: 90 MILLIGRAM, ONCE DAILY (QD)
     Route: 048
     Dates: start: 20201222
  10. LEVOMETHADONE [Suspect]
     Active Substance: LEVOMETHADONE
     Indication: Drug withdrawal maintenance therapy
  11. RAMIPRIL [Suspect]
     Active Substance: RAMIPRIL
     Indication: Hypertension
     Dosage: 2.5 MILLIGRAM, ONCE DAILY (QD)
     Route: 048
     Dates: start: 20210319
  12. METAMIZOLE [Suspect]
     Active Substance: METAMIZOLE
     Indication: Product used for unknown indication
     Dosage: ON DEMAND
     Route: 065
     Dates: start: 20220315

REACTIONS (14)
  - Abdominal pain upper [Recovered/Resolved]
  - Internal fixation of fracture [Recovered/Resolved]
  - Ligament sprain [Recovering/Resolving]
  - Decreased appetite [Not Recovered/Not Resolved]
  - Loss of consciousness [Recovered/Resolved]
  - Diabetes mellitus [Not Recovered/Not Resolved]
  - Anal haemorrhage [Not Recovered/Not Resolved]
  - Vitamin D deficiency [Not Recovered/Not Resolved]
  - Urinary tract infection [Not Recovered/Not Resolved]
  - Leukocytosis [Recovered/Resolved]
  - Headache [Unknown]
  - Vomiting [Recovering/Resolving]
  - Coronavirus test positive [Recovered/Resolved]
  - Laboratory test abnormal [Unknown]

NARRATIVE: CASE EVENT DATE: 20211007
